FAERS Safety Report 4655938-7 (Version None)
Quarter: 2005Q2

REPORT INFORMATION
  Report Type: 
  Country: None (occurrence: None)
  Receive Date: 20050506
  Receipt Date: 20050506
  Transmission Date: 20051028
  Serious: Yes (Hospitalization)
  Sender: FDA-Public Use
  Company Number: None

PATIENT
  Sex: Male
  Weight: 75 kg

DRUGS (5)
  1. INTERFERON ALPHACON-1   9 MCG   INTERMUNE [Suspect]
     Indication: HEPATITIS C
     Dosage: 9 MCG   TIW   SUBCUTANEOU
     Route: 058
     Dates: start: 20041126, end: 20050320
  2. RIBAVIRIN [Suspect]
     Indication: HEPATITIS C
     Dosage: 400 MG   BID PC   ORAL
     Route: 048
     Dates: start: 20041126, end: 20050320
  3. TETRACYCLINE [Concomitant]
  4. PANTOPRAZOLE SODIUM [Concomitant]
  5. FILGRASTIM [Concomitant]

REACTIONS (4)
  - CHOLELITHIASIS [None]
  - DIARRHOEA [None]
  - PAIN [None]
  - PANCREATITIS [None]
